FAERS Safety Report 5061021-1 (Version None)
Quarter: 2006Q3

REPORT INFORMATION
  Report Type: 
  Country: None (occurrence: None)
  Receive Date: 20060719
  Receipt Date: 20060719
  Transmission Date: 20061208
  Serious: Yes (Death, Hospitalization)
  Sender: FDA-Public Use
  Company Number: None

PATIENT
  Sex: Male

DRUGS (7)
  1. HEPARIN [Suspect]
     Indication: THROMBOSIS PROPHYLAXIS
     Dosage: 5000 UNITS  Q 8 HR SQ
     Route: 058
     Dates: start: 20060413, end: 20060426
  2. ASPIRIN [Concomitant]
  3. FERROUS SULFATE TAB [Concomitant]
  4. FINASTERIDE [Concomitant]
  5. FUROSEMIDE [Concomitant]
  6. PSYLLIUM [Concomitant]
  7. TERAZOSIN HCL [Concomitant]

REACTIONS (3)
  - CARDIAC DISORDER [None]
  - CONDITION AGGRAVATED [None]
  - HEPARIN-INDUCED THROMBOCYTOPENIA [None]
